FAERS Safety Report 23420669 (Version 1)
Quarter: 2024Q1

REPORT INFORMATION
  Report Type: Spontaneous
  Country: US (occurrence: US)
  Receive Date: 20240119
  Receipt Date: 20240119
  Transmission Date: 20240410
  Serious: Yes (Hospitalization, Other)
  Sender: FDA-Public Use
  Company Number: US-GSK-US2024005661

PATIENT

DRUGS (11)
  1. TRELEGY ELLIPTA [Suspect]
     Active Substance: FLUTICASONE FUROATE\UMECLIDINIUM BROMIDE\VILANTEROL TRIFENATATE
     Indication: Chronic obstructive pulmonary disease
     Dosage: 1 PUFF(S), QD; 100/62.5/25MCG
     Dates: start: 2021
  2. ALBUTEROL SULFATE [Concomitant]
     Active Substance: ALBUTEROL SULFATE
     Indication: Chronic obstructive pulmonary disease
     Dosage: UNK; PRN AS NEEDED
  3. GABAPENTIN [Concomitant]
     Active Substance: GABAPENTIN
     Indication: Fibromyalgia
     Dosage: 800 MG, QID
  4. TIZANIDINE [Concomitant]
     Active Substance: TIZANIDINE
     Indication: Fibromyalgia
     Dosage: 4 MG, TID
  5. PRIMIDONE [Concomitant]
     Active Substance: PRIMIDONE
     Indication: Tremor
     Dosage: 250 MG, BID
  6. ASPIRIN [Concomitant]
     Active Substance: ASPIRIN
     Indication: Coronary artery disease
     Dosage: 81 MG, QD
  7. ROSUVASTATIN [Concomitant]
     Active Substance: ROSUVASTATIN
     Indication: Blood cholesterol
     Dosage: 1 DF, QD (41 MG ONE TAB IN PM)
  8. PANTOPRAZOLE [Concomitant]
     Active Substance: PANTOPRAZOLE
     Indication: Cardiac disorder
     Dosage: 40 MG, QD (ONCE A NIGHT)
  9. METOPROLOL [Concomitant]
     Active Substance: METOPROLOL
     Indication: Cardiac disorder
     Dosage: 1 DF, QD (25 MG ONE TAB A NIGHT)
  10. MIDODRINE [Concomitant]
     Active Substance: MIDODRINE
     Indication: Cardiac disorder
     Dosage: 2.5 MG, QD (TAB ONCE AT PM)
  11. NITROGLYCERIN [Concomitant]
     Active Substance: NITROGLYCERIN
     Indication: Chest pain
     Dosage: 0.4 MG (AS NEEDED)

REACTIONS (5)
  - Pneumonia [Not Recovered/Not Resolved]
  - Sepsis [Unknown]
  - Foot deformity [Not Recovered/Not Resolved]
  - Coronary artery disease [Not Recovered/Not Resolved]
  - Cough [Not Recovered/Not Resolved]

NARRATIVE: CASE EVENT DATE: 20230501
